FAERS Safety Report 7104829-0 (Version None)
Quarter: 2010Q4

REPORT INFORMATION
  Report Type: 
  Country: None (occurrence: None)
  Receive Date: 20101116
  Receipt Date: 20101105
  Transmission Date: 20110411
  Serious: Yes (Other)
  Sender: FDA-Public Use
  Company Number: US-JNJFOC-20101103528

PATIENT
  Sex: Male
  Weight: 71.67 kg

DRUGS (3)
  1. DURAGESIC-100 [Suspect]
     Indication: PAIN
     Route: 062
  2. DURAGESIC-100 [Suspect]
     Route: 062
  3. ADDERALL 10 [Concomitant]
     Route: 048

REACTIONS (3)
  - HYPERTENSIVE CRISIS [None]
  - THERAPY CESSATION [None]
  - WITHDRAWAL SYNDROME [None]
